FAERS Safety Report 23911875 (Version 1)
Quarter: 2024Q2

REPORT INFORMATION
  Report Type: Spontaneous
  Country: CN (occurrence: CN)
  Receive Date: 20240528
  Receipt Date: 20240528
  Transmission Date: 20240716
  Serious: Yes (Hospitalization, Other)
  Sender: FDA-Public Use
  Company Number: CN-009507513-2405CHN008111

PATIENT
  Age: 57 Year
  Sex: Male
  Weight: 65 kg

DRUGS (9)
  1. KEYTRUDA [Suspect]
     Active Substance: PEMBROLIZUMAB
     Indication: Lung neoplasm malignant
     Dosage: 200 MG, DAY 1
     Dates: start: 20230616, end: 20230616
  2. KEYTRUDA [Suspect]
     Active Substance: PEMBROLIZUMAB
     Dosage: 200 MG, DAY 1
     Dates: start: 20230720, end: 20230720
  3. KEYTRUDA [Suspect]
     Active Substance: PEMBROLIZUMAB
     Dosage: 200 MG, ONCE (ALSO REPORTED AS DAY 1)
     Route: 041
     Dates: start: 20240110, end: 20240110
  4. PACLITAXEL [Concomitant]
     Active Substance: PACLITAXEL
     Indication: Lung neoplasm malignant
     Dosage: 400 MG DAY 1
     Dates: start: 20230616, end: 20230616
  5. PACLITAXEL [Concomitant]
     Active Substance: PACLITAXEL
     Dosage: 400 MG DAY 1
     Dates: start: 20230720, end: 20230720
  6. PACLITAXEL [Concomitant]
     Active Substance: PACLITAXEL
     Dosage: 400 MG, ONCE (ALSO REPORTED AS DAY 1)
     Route: 041
     Dates: start: 20240110, end: 20240110
  7. CARBOPLATIN [Concomitant]
     Active Substance: CARBOPLATIN
     Indication: Lung neoplasm malignant
     Dosage: 0.6G, DAY 1
     Dates: start: 20230616, end: 20230616
  8. CARBOPLATIN [Concomitant]
     Active Substance: CARBOPLATIN
     Dosage: 0.6G, DAY 1
     Dates: start: 20230720, end: 20230720
  9. CARBOPLATIN [Concomitant]
     Active Substance: CARBOPLATIN
     Dosage: 0.5 G, ONCE (ALSO REPORTED AS DAY 1)
     Route: 041
     Dates: start: 20240110, end: 20240110

REACTIONS (7)
  - Lymphadenectomy [Unknown]
  - Lung lobectomy [Unknown]
  - Pneumonia [Unknown]
  - Adrenal insufficiency [Recovering/Resolving]
  - Hypothyroidism [Recovering/Resolving]
  - Adhesiolysis [Unknown]
  - Inappropriate schedule of product administration [Unknown]

NARRATIVE: CASE EVENT DATE: 20230720
